FAERS Safety Report 7490096-5 (Version None)
Quarter: 2011Q2

REPORT INFORMATION
  Report Type: 
  Country: None (occurrence: None)
  Receive Date: 20110519
  Receipt Date: 20110513
  Transmission Date: 20111010
  Serious: Yes (Other)
  Sender: FDA-Public Use
  Company Number: US-PFIZER INC-2011104504

PATIENT
  Sex: Female

DRUGS (2)
  1. PRISTIQ [Suspect]
     Dosage: 37.5 MG, UNK
  2. PAROXETINE HYDROCHLORIDE [Suspect]

REACTIONS (5)
  - TREMOR [None]
  - HALLUCINATION [None]
  - HEART RATE INCREASED [None]
  - SUICIDAL IDEATION [None]
  - TINNITUS [None]
